FAERS Safety Report 7021490-4 (Version None)
Quarter: 2010Q3

REPORT INFORMATION
  Report Type: 
  Country: None (occurrence: None)
  Receive Date: 20100928
  Receipt Date: 20100917
  Transmission Date: 20110219
  Serious: Yes (Other)
  Sender: FDA-Public Use
  Company Number: 698991

PATIENT
  Age: 54 Year
  Sex: Female

DRUGS (30)
  1. HEPARIN SODIUM [Suspect]
     Indication: DEEP VEIN THROMBOSIS
     Dosage: 25,000 UNITS, INTRAVENOUS DRIP
     Route: 041
     Dates: start: 20070101, end: 20070101
  2. HEPARIN SODIUM [Suspect]
     Indication: PRODUCT USED FOR UNKNOWN INDICATION
     Dosage: 25,000 UNITS, INTRAVENOUS DRIP
     Route: 041
     Dates: start: 20070101, end: 20070101
  3. HEPARIN SODIUM [Suspect]
     Indication: DEEP VEIN THROMBOSIS
     Dosage: 25,000 UNITS, INTRAVENOUS DRIP
     Route: 041
     Dates: start: 20080403, end: 20080403
  4. HEPARIN SODIUM [Suspect]
     Indication: PRODUCT USED FOR UNKNOWN INDICATION
     Dosage: 25,000 UNITS, INTRAVENOUS DRIP
     Route: 041
     Dates: start: 20080403, end: 20080403
  5. HEPARIN [Suspect]
     Indication: PRODUCT USED FOR UNKNOWN INDICATION
  6. CALCIUM 10% CHLORIDE INJECTION, USP, PLASTIC ANSYR SYRINGE (CALCIUM CH [Concomitant]
  7. DEXTROSE 5% INJECTION, USP, IN FLEXIBLE PLASTIC CONTAINER (DEXTROSE) [Concomitant]
  8. DIPHENHYDRAMINE HCL INJ., USP, 50 MG/ML (MCPHERSON) (DIPHENHYDRAMINE) [Concomitant]
  9. LASIX [Concomitant]
  10. ONDANSETRON INJECTION USP, 2 MG/ML (MULTI-DOSE VIAL) (ONDANSETRON) [Concomitant]
  11. PROMETHAZINE HCL INJECTION, USP (MCPHERSON) (PROMETHAZINE HYDROCHLORID [Concomitant]
  12. ACETAMINOPHEN [Concomitant]
  13. ALBUMIN (HUMAN) [Concomitant]
  14. ALBUTEROL SULFATE AND IPRATROPIUM BROMIDE [Concomitant]
  15. CALCIUM GLUCONATE [Concomitant]
  16. COREG [Concomitant]
  17. (CORTROSYN /00137801/) [Concomitant]
  18. (DOCUSATE SODIUM W/SENNA) [Concomitant]
  19. ESOMEPRAZOLE MAGNESIUM [Concomitant]
  20. ESZOPICLONE [Concomitant]
  21. (GUAIFENESIN LA) [Concomitant]
  22. LEVOFLOXACIN [Concomitant]
  23. (NICOTINE) [Concomitant]
  24. SODIUM CHLORIDE 0.9% INJECTION, USP (SODIUM CHLORIDE) [Concomitant]
  25. (INSULIN) [Concomitant]
  26. SODIUM BICARBONATE (SODIUM HYDROGEN CARBONATE) [Concomitant]
  27. SODIUM POLYSTYRENE SULFONATE [Concomitant]
  28. TEMAZEPAM [Concomitant]
  29. (POTASSIUM) [Concomitant]
  30. (OXYGEN) [Concomitant]

REACTIONS (8)
  - BLOOD PRESSURE INCREASED [None]
  - CEREBROVASCULAR ACCIDENT [None]
  - HEPARIN-INDUCED THROMBOCYTOPENIA [None]
  - HYPOTENSION [None]
  - MULTI-ORGAN FAILURE [None]
  - PULMONARY HYPERTENSION [None]
  - SUBSTANCE ABUSE [None]
  - UNEVALUABLE EVENT [None]
